FAERS Safety Report 4299073-9 (Version None)
Quarter: 2004Q1

REPORT INFORMATION
  Report Type: 
  Country: None (occurrence: None)
  Receive Date: 20040218
  Receipt Date: 20040204
  Transmission Date: 20041129
  Serious: Yes (Hospitalization)
  Sender: FDA-Public Use
  Company Number: PANC00204000397

PATIENT
  Age: 71 Year
  Sex: Male
  Weight: 72.5755 kg

DRUGS (4)
  1. CREON [Suspect]
     Indication: PANCREATIC ENZYMES DECREASED
     Dosage: DAILY PO
     Route: 048
     Dates: start: 19890101
  2. ACCUPRIL [Concomitant]
  3. NOVALOG (NOVALOG) [Concomitant]
  4. LANTUS (LANTUS) [Concomitant]

REACTIONS (1)
  - CORONARY ARTERY OCCLUSION [None]
